FAERS Safety Report 10270655 (Version 2)
Quarter: 2014Q3

REPORT INFORMATION
  Report Type: Report from Study
  Country: DE (occurrence: DE)
  Receive Date: 20140701
  Receipt Date: 20140716
  Transmission Date: 20150326
  Serious: Yes (Hospitalization)
  Sender: FDA-Public Use
  Company Number: DE-PFIZER INC-2014172933

PATIENT
  Age: 63 Year
  Sex: Male
  Weight: 96.1 kg

DRUGS (13)
  1. CLEXANE [Concomitant]
     Active Substance: ENOXAPARIN SODIUM
     Dosage: 2 X DAY
  2. HEPARIN [Concomitant]
     Active Substance: HEPARIN SODIUM
     Dosage: UNK
     Dates: start: 20140620, end: 20140620
  3. TEMSIROLIMUS [Suspect]
     Active Substance: TEMSIROLIMUS
     Dosage: 50 MG, CYCLIC (DAY 1 AND 8)
     Dates: start: 20140606
  4. CYTARABINE. [Concomitant]
     Active Substance: CYTARABINE
     Dosage: 4420 MG, UNK
     Dates: start: 20140609
  5. ACICLOVIR [Concomitant]
     Active Substance: ACYCLOVIR
     Dosage: 2000 MG, DAILY
     Dates: start: 20140620
  6. MERONEM [Concomitant]
     Active Substance: MEROPENEM
     Dosage: 3 G, UNK
  7. AMPHOMORONAL [Concomitant]
     Dosage: 1 BOTTLE, DAILY
     Dates: start: 20140620
  8. CISPLATIN. [Concomitant]
     Active Substance: CISPLATIN
     Dosage: 211 MG, UNK
     Dates: start: 20140608
  9. ALLOPURINOL. [Concomitant]
     Active Substance: ALLOPURINOL
     Dosage: 300 MG, DAILY
  10. NEUPOGEN [Concomitant]
     Active Substance: FILGRASTIM
     Dosage: UNK
     Dates: start: 20140620, end: 20140624
  11. RITUXIMAB [Concomitant]
     Active Substance: RITUXIMAB
     Dosage: 791.25 MG, UNK
     Dates: start: 20140607
  12. DEXAMETHASONE. [Concomitant]
     Active Substance: DEXAMETHASONE
     Dosage: 40 MG, UNK
     Dates: start: 20140607, end: 20140610
  13. NITRO [Concomitant]
     Active Substance: NITROGLYCERIN
     Dosage: UNK
     Dates: start: 20140620, end: 20140620

REACTIONS (1)
  - Pneumonia [Recovered/Resolved]

NARRATIVE: CASE EVENT DATE: 20140620
